FAERS Safety Report 15473157 (Version 1)
Quarter: 2018Q4

REPORT INFORMATION
  Report Type: Spontaneous
  Country: US (occurrence: US)
  Receive Date: 20181008
  Receipt Date: 20181008
  Transmission Date: 20190205
  Serious: No
  Sender: FDA-Public Use
  Company Number: US-BAYER-2018-185039

PATIENT
  Sex: Female

DRUGS (3)
  1. CLARITIN [Suspect]
     Active Substance: LORATADINE
     Dosage: UNK
  2. FLINTSTONES COMPLETE [Suspect]
     Active Substance: VITAMINS
     Indication: NUTRITIONAL SUPPLEMENTATION
     Dosage: CHEW HALF TABLET DAILY
     Route: 048
     Dates: start: 2017
  3. ELDERBERRY [Concomitant]
     Active Substance: HERBALS
     Dosage: UNK

REACTIONS (1)
  - Poor quality product administered [Unknown]
